FAERS Safety Report 9023425 (Version 1)
Quarter: 2013Q1

REPORT INFORMATION
  Report Type: Spontaneous
  Country: US (occurrence: US)
  Receive Date: 20130121
  Receipt Date: 20130121
  Transmission Date: 20140127
  Serious: Yes (Hospitalization)
  Sender: FDA-Public Use
  Company Number: US-MYLANLABS-2013S1000732

PATIENT
  Age: 68 Year
  Sex: Male

DRUGS (2)
  1. TACROLIMUS [Suspect]
     Route: 065
  2. CICLOSPORIN [Suspect]
     Route: 065

REACTIONS (3)
  - Guillain-Barre syndrome [Recovering/Resolving]
  - Renal failure acute [Unknown]
  - Rhabdomyolysis [Unknown]
